FAERS Safety Report 5989447-X (Version None)
Quarter: 2008Q4

REPORT INFORMATION
  Report Type: 
  Country: None (occurrence: None)
  Receive Date: 20081205
  Receipt Date: 20081120
  Transmission Date: 20090506
  Serious: Yes (Hospitalization)
  Sender: FDA-Public Use
  Company Number: 8039305

PATIENT
  Age: 41 Year
  Sex: Male

DRUGS (11)
  1. KEPPRA [Suspect]
     Dosage: 750 MG 2/D
     Dates: start: 20080215, end: 20081106
  2. IPILIMUMAB [Suspect]
     Indication: MALIGNANT MELANOMA
     Dosage: 10 MG/KG IV
     Route: 042
     Dates: start: 20080917, end: 20080917
  3. OXYCODONE [Suspect]
     Indication: HERPES ZOSTER
  4. FAMOTIDINE [Concomitant]
  5. DEXAMETHAZONE-PIX [Concomitant]
  6. LISINOPRIL [Concomitant]
  7. CLINDAMYCIN HCL [Concomitant]
  8. TRIMETHOPRIM + SULFAMETHOXAZOLE [Concomitant]
  9. ERGOCALCIFEROL [Concomitant]
  10. LYRICA [Concomitant]
  11. VALACYCLOVIR [Concomitant]

REACTIONS (15)
  - AGGRESSION [None]
  - ATAXIA [None]
  - BRAIN OEDEMA [None]
  - CONDITION AGGRAVATED [None]
  - CONFUSIONAL STATE [None]
  - CSF PROTEIN INCREASED [None]
  - FALL [None]
  - GAZE PALSY [None]
  - HERPES ZOSTER [None]
  - INFECTION [None]
  - LOSS OF CONSCIOUSNESS [None]
  - METASTASES TO CENTRAL NERVOUS SYSTEM [None]
  - MUSCULAR WEAKNESS [None]
  - NERVOUS SYSTEM DISORDER [None]
  - TREMOR [None]
